FAERS Safety Report 7228393-0 (Version None)
Quarter: 2011Q1

REPORT INFORMATION
  Report Type: 
  Country: None (occurrence: None)
  Receive Date: 20110114
  Receipt Date: 20110106
  Transmission Date: 20110831
  Serious: Yes (Hospitalization)
  Sender: FDA-Public Use
  Company Number: US-MILLENNIUM PHARMACEUTICALS, INC.-2011-00060

PATIENT
  Sex: Female

DRUGS (3)
  1. VELCADE [Suspect]
     Indication: AMYLOIDOSIS
     Dosage: UNK
     Route: 042
     Dates: start: 20100901
  2. DEXAMETHASONE [Suspect]
     Indication: AMYLOIDOSIS
  3. LASIX [Concomitant]
     Indication: PRODUCT USED FOR UNKNOWN INDICATION

REACTIONS (3)
  - PAIN IN EXTREMITY [None]
  - GIARDIASIS [None]
  - DIARRHOEA [None]
